FAERS Safety Report 7023213-1 (Version None)
Quarter: 2010Q3

REPORT INFORMATION
  Report Type: 
  Country: None (occurrence: None)
  Receive Date: 20100916
  Receipt Date: 20100524
  Transmission Date: 20110219
  Serious: No
  Sender: FDA-Public Use
  Company Number: DKLU1062473

PATIENT

DRUGS (3)
  1. SABRIL [Suspect]
     Indication: EPILEPSY
     Dosage: 2 IN 1 D, ORAL
     Route: 048
  2. LAMOTRIGINE [Concomitant]
  3. DEPAKOTE [Concomitant]

REACTIONS (1)
  - DRUG INEFFECTIVE [None]
